FAERS Safety Report 14125987 (Version 1)
Quarter: 2017Q4

REPORT INFORMATION
  Report Type: Spontaneous
  Country: US (occurrence: US)
  Receive Date: 20171025
  Receipt Date: 20171025
  Transmission Date: 20180321
  Serious: No
  Sender: FDA-Public Use
  Company Number: US-BAYER-2017-204249

PATIENT
  Age: 70 Year
  Sex: Female
  Weight: 70.3 kg

DRUGS (1)
  1. MIRALAX [Suspect]
     Active Substance: POLYETHYLENE GLYCOL 3350
     Indication: COLONOSCOPY
     Dosage: 17G IN GLASS OF WATER OR APPLE JUICE. DOSE
     Route: 048
     Dates: start: 2015

REACTIONS (4)
  - Product use issue [Unknown]
  - Off label use [Unknown]
  - Inappropriate prescribing [Unknown]
  - Product use in unapproved indication [Unknown]
